FAERS Safety Report 24407868 (Version 1)
Quarter: 2024Q4

REPORT INFORMATION
  Report Type: Spontaneous
  Country: US (occurrence: US)
  Receive Date: 20241007
  Receipt Date: 20241007
  Transmission Date: 20250115
  Serious: Yes (Other)
  Sender: BRISTOL MYERS SQUIBB
  Company Number: US-BRISTOL-MYERS SQUIBB COMPANY-2024-154211

PATIENT
  Sex: Female

DRUGS (2)
  1. ORENCIA [Suspect]
     Active Substance: ABATACEPT
     Indication: Product used for unknown indication
  2. OTREXUP [Suspect]
     Active Substance: METHOTREXATE
     Indication: Pain

REACTIONS (3)
  - Fatigue [Unknown]
  - Pain [Unknown]
  - Autoimmune disorder [Unknown]
